FAERS Safety Report 4809315-6 (Version None)
Quarter: 2005Q4

REPORT INFORMATION
  Report Type: 
  Country: None (occurrence: None)
  Receive Date: 20051021
  Receipt Date: 20040609
  Transmission Date: 20060501
  Serious: No
  Sender: FDA-Public Use
  Company Number: DE_040613748

PATIENT
  Age: 16 Year
  Sex: Female

DRUGS (2)
  1. ZYPREXA [Suspect]
     Indication: ANOREXIA NERVOSA
     Dosage: 5 MG DAY
     Dates: start: 20040307, end: 20040608
  2. ORFIRIL - SLOW RELEASE(VALPROATE SODIUM) [Concomitant]

REACTIONS (1)
  - WHITE BLOOD CELL COUNT DECREASED [None]
